FAERS Safety Report 6719043-8 (Version None)
Quarter: 2010Q2

REPORT INFORMATION
  Report Type: 
  Country: None (occurrence: None)
  Receive Date: 20100507
  Receipt Date: 20100503
  Transmission Date: 20101027
  Serious: Yes (Hospitalization)
  Sender: FDA-Public Use
  Company Number: 1000013528

PATIENT
  Age: 53 Year
  Sex: Female

DRUGS (12)
  1. LEXAPRO [Suspect]
     Indication: FIBROMYALGIA
     Dosage: 10 MG (10 MG, 1 IN 1 D), ORAL
     Route: 048
     Dates: start: 20030101, end: 20100201
  2. LEXAPRO [Suspect]
     Indication: FIBROMYALGIA
     Dosage: 10 MG, EVERY OTEHR DAY, ORAL
     Route: 048
     Dates: start: 20100201, end: 20100307
  3. EXFORGE HCT [Concomitant]
  4. METOPROLOL SUCCINATE [Concomitant]
  5. NEXIUM [Concomitant]
  6. PALGIC [Concomitant]
  7. ASPIRIN [Concomitant]
  8. LUTEIN [Concomitant]
  9. CALCIUM [Concomitant]
  10. FISH OIL [Concomitant]
  11. L-LYSINE [Concomitant]
  12. VITAMIN C [Concomitant]

REACTIONS (10)
  - ALANINE AMINOTRANSFERASE INCREASED [None]
  - ASPARTATE AMINOTRANSFERASE INCREASED [None]
  - BLOOD POTASSIUM DECREASED [None]
  - DIZZINESS [None]
  - FATIGUE [None]
  - HAEMORRHAGIC ANAEMIA [None]
  - HYSTERECTOMY [None]
  - OEDEMA PERIPHERAL [None]
  - UTERINE HAEMORRHAGE [None]
  - UTERINE LEIOMYOMA [None]
